FAERS Safety Report 9798651 (Version 1)
Quarter: 2014Q1

REPORT INFORMATION
  Report Type: Spontaneous
  Country: RU (occurrence: RU)
  Receive Date: 20140106
  Receipt Date: 20140106
  Transmission Date: 20141002
  Serious: Yes (Other)
  Sender: FDA-Public Use
  Company Number: PHHY2013RU153782

PATIENT
  Sex: Female

DRUGS (2)
  1. PACLITAXEL EBEWE [Suspect]
     Indication: BREAST CANCER
     Route: 042
     Dates: start: 201312, end: 201312
  2. DOXORUBICIN [Concomitant]

REACTIONS (4)
  - Pneumonitis [Recovering/Resolving]
  - Dyspnoea [Recovering/Resolving]
  - Cough [Recovering/Resolving]
  - Respiratory failure [Recovering/Resolving]
